FAERS Safety Report 9780261 (Version 2)
Quarter: 2014Q1

REPORT INFORMATION
  Report Type: Spontaneous
  Country: US (occurrence: US)
  Receive Date: 20131223
  Receipt Date: 20140304
  Transmission Date: 20141002
  Serious: Yes (Death, Hospitalization)
  Sender: FDA-Public Use
  Company Number: US-CELGENEUS-163-21880-13122369

PATIENT
  Age: 82 Year
  Sex: Male

DRUGS (2)
  1. REVLIMID [Suspect]
     Indication: MYELODYSPLASTIC SYNDROME
     Dosage: 5 MILLIGRAM
     Route: 048
     Dates: start: 201310, end: 20131209
  2. ARANESP [Concomitant]
     Indication: ANAEMIA
     Dosage: 20 MILLIEQUIVALENTS
     Route: 065
     Dates: start: 201310

REACTIONS (3)
  - Neutropenia [Fatal]
  - Pneumonia [Unknown]
  - Respiratory failure [Unknown]
